FAERS Safety Report 10238153 (Version 1)
Quarter: 2014Q2

REPORT INFORMATION
  Report Type: Report from Study
  Country: VE (occurrence: VE)
  Receive Date: 20140616
  Receipt Date: 20140616
  Transmission Date: 20141212
  Serious: Yes (Hospitalization)
  Sender: FDA-Public Use
  Company Number: PHHY2014VE073700

PATIENT
  Sex: Female

DRUGS (3)
  1. ONBREZ [Suspect]
     Indication: CHRONIC OBSTRUCTIVE PULMONARY DISEASE
     Dosage: 150 UG
     Route: 048
     Dates: start: 2012
  2. ONBREZ [Suspect]
     Dosage: 150 UG
     Dates: start: 2012, end: 201404
  3. ONBREZ [Suspect]
     Dosage: UNK

REACTIONS (3)
  - Fatigue [Recovering/Resolving]
  - Wheezing [Recovering/Resolving]
  - Incorrect route of drug administration [Unknown]
